FAERS Safety Report 9435963 (Version 1)
Quarter: 2013Q3

REPORT INFORMATION
  Report Type: Spontaneous
  Country: US (occurrence: US)
  Receive Date: 20130801
  Receipt Date: 20130801
  Transmission Date: 20140515
  Serious: No
  Sender: FDA-Public Use
  Company Number: US-009507513-1307USA012558

PATIENT
  Age: 42 Year
  Sex: Female
  Weight: 104.31 kg

DRUGS (7)
  1. VICTRELIS [Suspect]
     Dosage: 800 MG, TID
     Route: 048
  2. REBETOL [Suspect]
     Route: 048
  3. PEGASYS [Suspect]
     Dosage: UNK
  4. CORTISONE [Concomitant]
  5. NEUPOGEN [Concomitant]
  6. ZOLOFT [Concomitant]
  7. TYLENOL [Concomitant]

REACTIONS (4)
  - Injection site rash [Recovered/Resolved]
  - Rash [Unknown]
  - Influenza like illness [Unknown]
  - Dysgeusia [Unknown]
